FAERS Safety Report 5262454-0 (Version None)
Quarter: 2007Q1

REPORT INFORMATION
  Report Type: 
  Country: None (occurrence: None)
  Receive Date: 20070312
  Receipt Date: 20070226
  Transmission Date: 20070707
  Serious: Yes (Other)
  Sender: FDA-Public Use
  Company Number: PHNU2006DE03006

PATIENT
  Age: 64 Year
  Sex: Female

DRUGS (5)
  1. CLOZAPINE [Suspect]
     Indication: SCHIZOPHRENIA
     Dosage: 400 MG/DAY
     Route: 048
     Dates: start: 20060719
  2. CLOZAPINE [Suspect]
     Dosage: 300 MG/DAY
     Route: 048
     Dates: start: 20060823, end: 20061002
  3. DIOVAN [Concomitant]
     Indication: HYPERTENSION
  4. LEVOTHYROXINE SODIUM [Concomitant]
     Indication: AUTOIMMUNE THYROIDITIS
  5. NORVASC [Concomitant]

REACTIONS (10)
  - ASPIRATION [None]
  - CARDIAC ARREST [None]
  - CIRCULATORY COLLAPSE [None]
  - DYSPHAGIA [None]
  - HYPOXIA [None]
  - LOSS OF CONSCIOUSNESS [None]
  - NIGHTMARE [None]
  - PNEUMONIA ASPIRATION [None]
  - RESUSCITATION [None]
  - SPEECH DISORDER [None]
